FAERS Safety Report 10554382 (Version 2)
Quarter: 2014Q4

REPORT INFORMATION
  Report Type: Spontaneous
  Country: US (occurrence: US)
  Receive Date: 20141030
  Receipt Date: 20141030
  Transmission Date: 20150529
  Serious: Yes (Hospitalization, Other)
  Sender: FDA-Public Use
  Company Number: US-GLAXOSMITHKLINE-A0873104A

PATIENT
  Sex: Male

DRUGS (1)
  1. AVANDIA [Suspect]
     Active Substance: ROSIGLITAZONE MALEATE
     Indication: DIABETES MELLITUS
     Dosage: UNK UNK, UNK
     Route: 048
     Dates: start: 199901, end: 200701

REACTIONS (10)
  - Nephritis [Unknown]
  - Ischaemic cardiomyopathy [Unknown]
  - Acute kidney injury [Unknown]
  - Cardiac failure congestive [Unknown]
  - Coronary artery bypass [Not Recovered/Not Resolved]
  - Cardiac arrest [Unknown]
  - Coronary artery disease [Unknown]
  - Renal impairment [Unknown]
  - Myocardial infarction [Unknown]
  - Supraventricular tachycardia [Unknown]
